FAERS Safety Report 24224043 (Version 1)
Quarter: 2024Q3

REPORT INFORMATION
  Report Type: Spontaneous
  Country: US (occurrence: US)
  Receive Date: 20240819
  Receipt Date: 20240819
  Transmission Date: 20241016
  Serious: No
  Sender: PFIZER
  Company Number: US-PFIZER INC-202400237424

PATIENT
  Age: 70 Year
  Sex: Female
  Weight: 69.4 kg

DRUGS (2)
  1. DEPO-ESTRADIOL [Suspect]
     Active Substance: ESTRADIOL CYPIONATE
     Indication: Menopausal symptoms
     Dosage: ONCE A MONTH
  2. DEPO-ESTRADIOL [Suspect]
     Active Substance: ESTRADIOL CYPIONATE
     Dosage: UNK

REACTIONS (6)
  - Disturbance in attention [Unknown]
  - Withdrawal syndrome [Unknown]
  - Irritability [Unknown]
  - Drug ineffective [Unknown]
  - Expired product administered [Unknown]
  - Intentional product misuse [Unknown]
